FAERS Safety Report 6977649-5 (Version None)
Quarter: 2010Q3

REPORT INFORMATION
  Report Type: 
  Country: None (occurrence: None)
  Receive Date: 20100913
  Receipt Date: 20100902
  Transmission Date: 20110219
  Serious: Yes (Hospitalization, Other)
  Sender: FDA-Public Use
  Company Number: US-BIOGENIDEC-2010BI030883

PATIENT
  Sex: Female

DRUGS (1)
  1. AVONEX [Suspect]
     Indication: MULTIPLE SCLEROSIS
     Route: 030
     Dates: start: 19990101, end: 20080101

REACTIONS (5)
  - CARDIOMYOPATHY [None]
  - ENDOMETRIAL ABLATION [None]
  - HYSTERECTOMY [None]
  - PROCEDURAL COMPLICATION [None]
  - UTERINE DILATION AND CURETTAGE [None]
